FAERS Safety Report 7353050-X (Version None)
Quarter: 2011Q1

REPORT INFORMATION
  Report Type: 
  Country: None (occurrence: None)
  Receive Date: 20110315
  Receipt Date: 20110308
  Transmission Date: 20110831
  Serious: Yes (Hospitalization)
  Sender: FDA-Public Use
  Company Number: B0699764A

PATIENT
  Age: 60 Year
  Sex: Female

DRUGS (10)
  1. AVANDARYL [Suspect]
     Indication: DIABETES MELLITUS
     Route: 048
     Dates: start: 20070213
  2. PROCRIT [Concomitant]
  3. HUMULIN R [Concomitant]
  4. ZETIA [Concomitant]
  5. LABETALOL HCL [Concomitant]
  6. AVANDIA [Suspect]
     Dosage: 4MG PER DAY
     Route: 048
     Dates: start: 20070130, end: 20070501
  7. GEMFIBROZIL [Concomitant]
  8. DIPYRIDAMOLE [Concomitant]
  9. GLIPIZIDE [Concomitant]
  10. NORVASC [Concomitant]

REACTIONS (3)
  - HEART RATE IRREGULAR [None]
  - SILENT MYOCARDIAL INFARCTION [None]
  - CARDIAC FAILURE CONGESTIVE [None]
